FAERS Safety Report 6077423-0 (Version None)
Quarter: 2009Q1

REPORT INFORMATION
  Report Type: 
  Country: None (occurrence: None)
  Receive Date: 20090213
  Receipt Date: 20090205
  Transmission Date: 20090719
  Serious: Yes (Death, Other)
  Sender: FDA-Public Use
  Company Number: US-JNJFOC-20090202826

PATIENT
  Age: 51 Year
  Sex: Male
  Weight: 89 kg

DRUGS (4)
  1. REMICADE [Suspect]
     Route: 042
  2. REMICADE [Suspect]
     Indication: CROHN'S DISEASE
     Route: 042
  3. METHOTREXATE [Concomitant]
  4. PREDNISONE [Concomitant]

REACTIONS (3)
  - HISTOPLASMOSIS DISSEMINATED [None]
  - INTESTINAL FISTULA [None]
  - SEPTIC SHOCK [None]
